FAERS Safety Report 6358231-X (Version None)
Quarter: 2009Q3

REPORT INFORMATION
  Report Type: 
  Country: None (occurrence: None)
  Receive Date: 20090916
  Receipt Date: 20090915
  Transmission Date: 20100115
  Serious: Yes (Hospitalization)
  Sender: FDA-Public Use
  Company Number: DE-WYE-G04431509

PATIENT
  Sex: Male
  Weight: 70 kg

DRUGS (1)
  1. IBUPROFEN [Suspect]
     Indication: HEADACHE
     Dosage: 1 DOSE PER DAY
     Dates: start: 20090911, end: 20090911

REACTIONS (3)
  - DRUG HYPERSENSITIVITY [None]
  - EYELID OEDEMA [None]
  - RASH [None]
